FAERS Safety Report 6880211-6 (Version None)
Quarter: 2010Q3

REPORT INFORMATION
  Report Type: 
  Country: None (occurrence: None)
  Receive Date: 20100728
  Receipt Date: 20100528
  Transmission Date: 20110219
  Serious: No
  Sender: FDA-Public Use
  Company Number: US-BRISTOL-MYERS SQUIBB COMPANY-15126477

PATIENT
  Sex: Male

DRUGS (3)
  1. SPRYCEL [Suspect]
  2. FLOMAX [Concomitant]
  3. CENTRUM SILVER [Concomitant]

REACTIONS (4)
  - ARTHRALGIA [None]
  - BURNING SENSATION [None]
  - MUSCULOSKELETAL PAIN [None]
  - NAUSEA [None]
